FAERS Safety Report 9364885 (Version 1)
Quarter: 2013Q2

REPORT INFORMATION
  Report Type: Spontaneous
  Country: US (occurrence: US)
  Receive Date: 20130624
  Receipt Date: 20130624
  Transmission Date: 20140414
  Serious: Yes (Other)
  Sender: FDA-Public Use
  Company Number: CHPA2012US025644

PATIENT
  Age: 42 Year
  Sex: Female

DRUGS (8)
  1. EXCEDRIN MIGRAINE [Suspect]
     Indication: MIGRAINE
     Dosage: 2 DF, UP TO 3 TIMES PER DAY
     Route: 048
     Dates: start: 1998
  2. VICODIN [Concomitant]
     Indication: HEADACHE
     Dosage: 1000 MG, PRN
  3. TOPAMAX [Concomitant]
     Indication: CONVULSION
     Dosage: 100 MG, BID
  4. TOPAMAX [Concomitant]
     Indication: HEADACHE
  5. LAMICTAL [Concomitant]
     Indication: EPILEPSY
     Dosage: 200 MG, BID
  6. LORAZEPAM [Concomitant]
     Indication: ANXIETY
     Dosage: 1 MG, TID PRN
  7. ELAVIL [Concomitant]
     Indication: INSOMNIA
     Dosage: 300 MG, QHS
  8. IBUPROFEN [Concomitant]
     Indication: TEMPOROMANDIBULAR JOINT SYNDROME
     Dosage: 600 TO 800 MG, PRN

REACTIONS (6)
  - Gastrooesophageal reflux disease [Unknown]
  - Blood cholesterol increased [Unknown]
  - Depression [Unknown]
  - Fibromyalgia [Recovering/Resolving]
  - Pain [Recovering/Resolving]
  - Inflammation [Recovering/Resolving]
